FAERS Safety Report 4586056-4 (Version None)
Quarter: 2005Q1

REPORT INFORMATION
  Report Type: 
  Country: None (occurrence: None)
  Receive Date: 20050125
  Receipt Date: 20040922
  Transmission Date: 20050727
  Serious: No
  Sender: FDA-Public Use
  Company Number: USA040978944

PATIENT
  Age: 71 Year
  Sex: Female
  Weight: 63 kg

DRUGS (8)
  1. FORTEO [Suspect]
     Indication: OSTEOPOROSIS
     Dosage: 20 UG/1 DAY
     Dates: start: 20030201
  2. ACTONEL [Concomitant]
  3. DIOVAN [Concomitant]
  4. ULTRAM [Concomitant]
  5. LIPITOR [Concomitant]
  6. PLAVIX (CLOPIDOGERL SULFATE) [Concomitant]
  7. ASPIRIN [Concomitant]
  8. ZOLOFT [Concomitant]

REACTIONS (1)
  - INJECTION SITE HAEMORRHAGE [None]
